FAERS Safety Report 5961791-1 (Version None)
Quarter: 2008Q4

REPORT INFORMATION
  Report Type: 
  Country: None (occurrence: None)
  Receive Date: 20081121
  Receipt Date: 20081112
  Transmission Date: 20090506
  Serious: Yes (Life-Threatening, Disabling)
  Sender: FDA-Public Use
  Company Number: DE-MERCK-0807DEU00005

PATIENT
  Age: 56 Year
  Sex: Female
  Weight: 60 kg

DRUGS (20)
  1. FOSAMAX PLUS D [Suspect]
     Indication: OSTEOPOROSIS
     Route: 048
     Dates: start: 20050101, end: 20080601
  2. PHENPROCOUMON [Concomitant]
     Indication: ARTERIAL OCCLUSIVE DISEASE
     Route: 048
     Dates: start: 19950101
  3. PHENPROCOUMON [Concomitant]
     Indication: TRANSIENT ISCHAEMIC ATTACK
     Route: 048
     Dates: start: 19950101
  4. CLOPIDOGREL BISULFATE [Concomitant]
     Indication: ARTERIAL OCCLUSIVE DISEASE
     Route: 048
     Dates: start: 20030101
  5. CLOPIDOGREL BISULFATE [Concomitant]
     Indication: TRANSIENT ISCHAEMIC ATTACK
     Route: 048
     Dates: start: 20030101
  6. LISINOPRIL [Concomitant]
     Indication: HYPERTENSION
     Route: 065
     Dates: start: 20030101
  7. BISOPROLOL FUMARATE [Concomitant]
     Indication: HYPERTENSION
     Route: 048
     Dates: start: 20030101
  8. AMLODIPINE BESYLATE [Concomitant]
     Indication: HYPERTENSION
     Route: 048
     Dates: start: 20030101
  9. ALLOPURINOL [Concomitant]
     Indication: HYPERURICAEMIA
     Route: 048
     Dates: start: 20030101
  10. THEOPHYLLINE [Concomitant]
     Indication: BRONCHITIS CHRONIC
     Route: 048
     Dates: start: 20020101
  11. VYTORIN [Concomitant]
     Indication: HYPERLIPIDAEMIA
     Route: 048
     Dates: start: 20030101
  12. LANSOPRAZOLE [Concomitant]
     Indication: PROPHYLAXIS AGAINST GASTROINTESTINAL ULCER
     Route: 048
     Dates: start: 20030101
  13. BLACK COHOSH [Concomitant]
     Indication: BREAST CANCER
     Route: 048
     Dates: start: 20050101
  14. EVENING PRIMROSE OIL [Concomitant]
     Indication: BREAST CANCER
     Route: 048
     Dates: start: 20050101
  15. BUFLOMEDIL HYDROCHLORIDE [Concomitant]
     Indication: ARTERIAL OCCLUSIVE DISEASE
     Route: 048
     Dates: start: 19950101
  16. BUFLOMEDIL HYDROCHLORIDE [Concomitant]
     Indication: CORONARY ARTERY BYPASS
     Route: 048
     Dates: start: 19950101
  17. TIOTROPIUM BROMIDE [Concomitant]
     Indication: BRONCHITIS CHRONIC
     Dates: start: 20020101
  18. OPIPRAMOL HYDROCHLORIDE [Concomitant]
     Indication: ADJUSTMENT DISORDER
     Route: 048
     Dates: start: 20040101
  19. BRIMONIDINE TARTRATE [Concomitant]
     Indication: GLAUCOMA
     Route: 047
     Dates: start: 19890101
  20. BRINZOLAMIDE [Concomitant]
     Indication: GLAUCOMA
     Route: 047
     Dates: start: 19890101

REACTIONS (4)
  - GINGIVAL RECESSION [None]
  - GINGIVITIS [None]
  - LOOSE TOOTH [None]
  - RESORPTION BONE INCREASED [None]
